FAERS Safety Report 7956127-0 (Version None)
Quarter: 2011Q4

REPORT INFORMATION
  Report Type: 
  Country: None (occurrence: None)
  Receive Date: 20111205
  Receipt Date: 20111130
  Transmission Date: 20120403
  Serious: Yes (Other)
  Sender: FDA-Public Use
  Company Number: US-BAYER-2011-065882

PATIENT
  Age: 66 Year
  Sex: Male

DRUGS (4)
  1. NEXAVAR [Suspect]
     Dosage: 200 MG, BID
     Route: 048
     Dates: start: 20110101
  2. NEXAVAR [Suspect]
     Indication: HEPATIC NEOPLASM MALIGNANT
     Dosage: 400 MG, BID
     Route: 048
     Dates: start: 20110601
  3. NEXAVAR [Suspect]
     Dosage: 200 MG, QD
     Route: 048
     Dates: start: 20110901
  4. NEXAVAR [Suspect]
     Dosage: 600 MG, QD
     Route: 048
     Dates: start: 20110101

REACTIONS (10)
  - INSOMNIA [None]
  - PROCTALGIA [None]
  - FAECES DISCOLOURED [None]
  - MUSCLE SPASMS [None]
  - MALIGNANT TUMOUR EXCISION [None]
  - FATIGUE [None]
  - HYPERAESTHESIA [None]
  - DIARRHOEA [None]
  - HAEMORRHOIDAL HAEMORRHAGE [None]
  - FLATULENCE [None]
